FAERS Safety Report 4899982-3 (Version None)
Quarter: 2006Q1

REPORT INFORMATION
  Report Type: 
  Country: None (occurrence: None)
  Receive Date: 20060131
  Receipt Date: 20060120
  Transmission Date: 20060701
  Serious: Yes (Other)
  Sender: FDA-Public Use
  Company Number: 2006011043

PATIENT
  Age: 57 Year
  Sex: 0
  Weight: 104.3273 kg

DRUGS (2)
  1. ALDACTAZIDE (HYDROCHLORIDE, SPIRONOLACTONE) [Suspect]
     Indication: HYPERTENSION
     Dosage: 25 MG (25 MG, DAILY INTERVAL: EVERY DAY) , ORAL
     Route: 048
  2. ANTIHYPERTENSIVES (ANTIHYPERTENSIVES) [Concomitant]

REACTIONS (1)
  - FACIAL PALSY [None]
